FAERS Safety Report 25318555 (Version 3)
Quarter: 2025Q4

REPORT INFORMATION
  Report Type: Report from Study
  Country: EU (occurrence: EU)
  Receive Date: 20250515
  Receipt Date: 20251017
  Transmission Date: 20260117
  Serious: Yes (Other)
  Sender: NOVARTIS
  Company Number: EU-002147023-NVSC2025IT077397

PATIENT
  Sex: Male

DRUGS (10)
  1. LUTATHERA [Suspect]
     Active Substance: LUTETIUM OXODOTREOTIDE LU-177
     Indication: Gastroenteropancreatic neuroendocrine tumour disease
     Dosage: 7.4 GBQ
     Route: 042
     Dates: start: 20211109
  2. LANREOTIDE ACETATE [Concomitant]
     Active Substance: LANREOTIDE ACETATE
     Indication: Gastroenteropancreatic neuroendocrine tumour disease
     Dosage: 120 MG
     Route: 058
     Dates: start: 201310
  3. IRBESARTAN [Concomitant]
     Active Substance: IRBESARTAN
     Indication: Hypertension
     Dosage: 300 MG
     Route: 048
     Dates: start: 2021
  4. HYDROCHLOROTHIAZIDE [Concomitant]
     Active Substance: HYDROCHLOROTHIAZIDE
     Indication: Hypertension
     Dosage: 12.5 MG
     Route: 048
     Dates: start: 202110
  5. ATENOLOL [Concomitant]
     Active Substance: ATENOLOL
     Indication: Hypertension
     Dosage: 50 MG
     Route: 048
     Dates: start: 202110
  6. AMLODIPINE BESYLATE [Concomitant]
     Active Substance: AMLODIPINE BESYLATE
     Indication: Hypertension
     Dosage: 5 MG
     Route: 048
     Dates: start: 202110
  7. METFORMIN [Concomitant]
     Active Substance: METFORMIN HYDROCHLORIDE
     Indication: Diabetes mellitus
     Dosage: 1000 MG
     Route: 048
     Dates: start: 202110
  8. HYDROCHLOROTHIAZIDE [Concomitant]
     Active Substance: HYDROCHLOROTHIAZIDE
     Indication: Hypertension
     Dosage: 12.5 MG
     Route: 048
     Dates: start: 202110
  9. URSODIOL [Concomitant]
     Active Substance: URSODIOL
     Indication: Bile duct stone
     Dosage: 450 MG
     Route: 048
     Dates: start: 202110
  10. DOXAZOSIN MESYLATE [Concomitant]
     Active Substance: DOXAZOSIN MESYLATE
     Indication: Hypertension
     Dosage: 2 MG
     Route: 048
     Dates: start: 202110

REACTIONS (1)
  - Ascites [Not Recovered/Not Resolved]

NARRATIVE: CASE EVENT DATE: 20220513
